FAERS Safety Report 5618567-4 (Version None)
Quarter: 2008Q1

REPORT INFORMATION
  Report Type: 
  Country: None (occurrence: None)
  Receive Date: 20080207
  Receipt Date: 20080201
  Transmission Date: 20080703
  Serious: Yes (Hospitalization)
  Sender: FDA-Public Use
  Company Number: FR-ABBOTT-08P-056-0433846-00

PATIENT
  Age: 86 Year
  Sex: Male

DRUGS (15)
  1. ODRIK [Suspect]
     Indication: DIABETIC NEPHROPATHY
     Route: 048
     Dates: start: 20071125, end: 20071204
  2. ODRIK [Suspect]
     Indication: CARDIOMYOPATHY
  3. ODRIK [Suspect]
     Indication: HYPERTENSION
  4. ERTAPENEM [Concomitant]
     Indication: DRUG USE FOR UNKNOWN INDICATION
     Route: 042
     Dates: start: 20071123, end: 20071203
  5. OFLOXACINE [Concomitant]
     Indication: DRUG USE FOR UNKNOWN INDICATION
     Route: 048
     Dates: start: 20071127
  6. PRISTINAMYCINE [Concomitant]
     Indication: DRUG USE FOR UNKNOWN INDICATION
     Route: 048
     Dates: start: 20071127
  7. VERAMIL, TRANDOLAPRIL [Concomitant]
     Indication: DRUG USE FOR UNKNOWN INDICATION
  8. FUROSEMIDE [Concomitant]
     Indication: DRUG USE FOR UNKNOWN INDICATION
  9. REPAGLINIDE [Concomitant]
     Indication: DRUG USE FOR UNKNOWN INDICATION
  10. CHLORURE DE POTASSIUM [Concomitant]
     Indication: DRUG USE FOR UNKNOWN INDICATION
  11. BISOPROLOL [Concomitant]
     Indication: DRUG USE FOR UNKNOWN INDICATION
  12. FLUINDIONE [Concomitant]
     Indication: DRUG USE FOR UNKNOWN INDICATION
  13. PANTOPRAZOLE [Concomitant]
     Indication: DRUG USE FOR UNKNOWN INDICATION
  14. INSULINE ASPARTE [Concomitant]
     Indication: DRUG USE FOR UNKNOWN INDICATION
  15. ATORVASTATIN CALCIUM [Concomitant]
     Indication: DRUG USE FOR UNKNOWN INDICATION

REACTIONS (1)
  - RENAL FAILURE ACUTE [None]
